FAERS Safety Report 9322358 (Version 2)
Quarter: 2013Q2

REPORT INFORMATION
  Report Type: Spontaneous
  Country: JP (occurrence: None)
  Receive Date: 20130529
  Receipt Date: 20130607
  Transmission Date: 20140414
  Serious: Yes (Other)
  Sender: FDA-Public Use
  Company Number: VAL_02538_2013

PATIENT
  Age: 26 Year
  Sex: Female

DRUGS (1)
  1. LOPRESSOR [Suspect]
     Indication: ARRHYTHMIA
     Dosage: 160 MG PER DAY (AT 32 WEEKS OF PREGNANCY)
     Route: 048
     Dates: end: 2006

REACTIONS (4)
  - Caesarean section [None]
  - Ejection fraction decreased [None]
  - Procedural haemorrhage [None]
  - Exposure during pregnancy [None]
